FAERS Safety Report 23807947 (Version 1)
Quarter: 2024Q2

REPORT INFORMATION
  Report Type: Spontaneous
  Country: IN (occurrence: IN)
  Receive Date: 20240502
  Receipt Date: 20240502
  Transmission Date: 20240715
  Serious: Yes (Other)
  Sender: FDA-Public Use
  Company Number: IN-PFIZER INC-2021790491

PATIENT
  Age: 75 Year
  Sex: Female
  Weight: 73.1 kg

DRUGS (4)
  1. PALBOCICLIB [Suspect]
     Active Substance: PALBOCICLIB
     Indication: Breast cancer metastatic
     Dosage: 125 MG, CYCLIC (ONCE A DAY WITH FOOD X 21 DAYS, 1 WEEK OFF)
     Route: 048
     Dates: start: 20210412
  2. LETROZOLE [Concomitant]
     Active Substance: LETROZOLE
     Dosage: 2.5 MG, 1X/DAY
     Dates: start: 20210412
  3. CALCIUM\CHOLECALCIFEROL [Concomitant]
     Active Substance: CALCIUM\CHOLECALCIFEROL
     Dosage: 500 MG, 2X/DAY
  4. ACETAMINOPHEN [Concomitant]
     Active Substance: ACETAMINOPHEN
     Indication: Pain
     Dosage: MAX 3 TAB/DAY

REACTIONS (10)
  - Hydronephrosis [Unknown]
  - Body mass index increased [Unknown]
  - Lacrimation increased [Not Recovered/Not Resolved]
  - Performance status decreased [Unknown]
  - Blood pressure increased [Unknown]
  - Peripheral swelling [Unknown]
  - Hepatic steatosis [Unknown]
  - Cholelithiasis [Unknown]
  - Blood pressure diastolic decreased [Unknown]
  - Blood creatinine increased [Unknown]

NARRATIVE: CASE EVENT DATE: 20210809
